FAERS Safety Report 18212822 (Version 1)
Quarter: 2020Q3

REPORT INFORMATION
  Report Type: Spontaneous
  Country: FR (occurrence: FR)
  Receive Date: 20200831
  Receipt Date: 20200831
  Transmission Date: 20201103
  Serious: Yes (Other)
  Sender: FDA-Public Use
  Company Number: FR-GLAXOSMITHKLINE-FR2020EME171959

PATIENT
  Age: 53 Year
  Sex: Female

DRUGS (2)
  1. LAMICTAL [Suspect]
     Active Substance: LAMOTRIGINE
     Indication: FACIAL NEURALGIA
     Dosage: 50 MG, QD
     Dates: start: 20200813
  2. LAMICTAL [Suspect]
     Active Substance: LAMOTRIGINE
     Dosage: 100 MG

REACTIONS (11)
  - Rash [Unknown]
  - Suicidal ideation [Unknown]
  - Tremor [Unknown]
  - Insomnia [Unknown]
  - Diplopia [Unknown]
  - Photopsia [Unknown]
  - Contraindication to medical treatment [Unknown]
  - Off label use [Unknown]
  - Chills [Unknown]
  - Headache [Unknown]
  - Agitation [Unknown]

NARRATIVE: CASE EVENT DATE: 20200813
